FAERS Safety Report 10149787 (Version 2)
Quarter: 2014Q2

REPORT INFORMATION
  Report Type: Spontaneous
  Country: GB (occurrence: None)
  Receive Date: 20140430
  Receipt Date: 20140523
  Transmission Date: 20141212
  Serious: Yes (Congenital Anomaly, Other)
  Sender: FDA-Public Use
  Company Number: AUR-APL-2014-05045

PATIENT
  Sex: 0

DRUGS (2)
  1. CITALOPRAM [Suspect]
     Indication: AFFECTIVE DISORDER
     Dosage: TRANSPLACENTAL ?
     Route: 064
  2. ZOLPIDEM (ZOLPIDEM) [Concomitant]

REACTIONS (3)
  - Foetal exposure during pregnancy [None]
  - Ventricular septal defect [None]
  - Congenital pulmonary valve atresia [None]
